FAERS Safety Report 6747919-4 (Version None)
Quarter: 2010Q2

REPORT INFORMATION
  Report Type: 
  Country: None (occurrence: None)
  Receive Date: 20100528
  Receipt Date: 20100517
  Transmission Date: 20101027
  Serious: Yes (Hospitalization, Other)
  Sender: FDA-Public Use
  Company Number: US-ELI_LILLY_AND_COMPANY-US201004006502

PATIENT
  Sex: Female

DRUGS (16)
  1. FORTEO [Suspect]
     Indication: OSTEOPOROSIS
     Dosage: 20 UG, DAILY (1/D)
     Dates: start: 20090304
  2. CYMBALTA [Concomitant]
     Dosage: 60 MG, DAILY (1/D)
  3. LASIX [Concomitant]
     Dosage: 20 MG, DAILY (1/D)
  4. AVAPRO [Concomitant]
     Dosage: 300 MG, EACH EVENING
  5. RELAFEN [Concomitant]
  6. PRILOSEC [Concomitant]
  7. ARAVA [Concomitant]
     Dosage: 20 MG, WEEKLY (1/W)
  8. METHOTREXATE [Concomitant]
  9. TOPROL-XL [Concomitant]
     Dosage: 50 MG, 2/D
  10. HYDROCHLOROTHIAZIDE [Concomitant]
     Dosage: 25 MG, DAILY (1/D)
  11. FOLIC ACID [Concomitant]
     Dosage: UNK, DAILY (1/D)
     Dates: start: 20100101
  12. CALCIUM CARBONATE [Concomitant]
     Dosage: 1500 MG, DAILY (1/D)
  13. ASPIRIN [Concomitant]
     Dosage: 81 MG, UNK
  14. TRAMADOL [Concomitant]
     Dosage: 5 MG, AS NEEDED
  15. TIZANIDINE [Concomitant]
     Dosage: 2 MG, DAILY (1/D)
  16. MULTI-VITAMIN [Concomitant]

REACTIONS (3)
  - BACK PAIN [None]
  - DEVICE BREAKAGE [None]
  - FALL [None]
